FAERS Safety Report 23269322 (Version 3)
Quarter: 2023Q4

REPORT INFORMATION
  Report Type: Spontaneous
  Country: US (occurrence: US)
  Receive Date: 20231207
  Receipt Date: 20231215
  Transmission Date: 20240110
  Serious: No
  Sender: FDA-Public Use
  Company Number: US-ABBVIE-5527962

PATIENT
  Sex: Female

DRUGS (3)
  1. ALPHAGAN P [Suspect]
     Active Substance: BRIMONIDINE TARTRATE
     Indication: Glaucoma
     Dosage: 1.5MG/ML SOLUTION
     Route: 047
  2. ALPHAGAN P [Suspect]
     Active Substance: BRIMONIDINE TARTRATE
     Dosage: 1.5MG/ML SOLUTION
     Route: 047
  3. ALPHAGAN P [Suspect]
     Active Substance: BRIMONIDINE TARTRATE
     Dosage: 1.5MG/ML SOLUTION
     Route: 047

REACTIONS (6)
  - Intraocular pressure increased [Unknown]
  - Auditory disorder [Not Recovered/Not Resolved]
  - Eye disorder [Unknown]
  - Counterfeit product administered [Unknown]
  - Suspected counterfeit product [Unknown]
  - Product packaging quantity issue [Unknown]
